FAERS Safety Report 8211893-4 (Version None)
Quarter: 2012Q1

REPORT INFORMATION
  Report Type: 
  Country: None (occurrence: None)
  Receive Date: 20120315
  Receipt Date: 20120308
  Transmission Date: 20120608
  Serious: Yes (Hospitalization)
  Sender: FDA-Public Use
  Company Number: MX-BAXTER-2012BH003302

PATIENT
  Age: 45 Year
  Sex: Male

DRUGS (15)
  1. DIANEAL [Suspect]
     Route: 033
     Dates: start: 20120101
  2. LOSARTAN POTASSIUM [Concomitant]
     Indication: HYPERTENSION
     Route: 048
  3. DIANEAL [Suspect]
     Route: 033
     Dates: start: 20120122
  4. CAPTOPRIL [Concomitant]
     Indication: HYPERTENSION
     Route: 048
  5. NIFEDIPINE [Concomitant]
     Indication: HYPERTENSION
     Route: 048
  6. EXTRANEAL [Suspect]
     Indication: PERITONEAL DIALYSIS
     Route: 033
     Dates: end: 20120101
  7. EXTRANEAL [Suspect]
     Route: 033
     Dates: end: 20120101
  8. DIANEAL [Suspect]
     Route: 033
     Dates: start: 20120122
  9. DIANEAL [Suspect]
     Route: 033
     Dates: start: 20120101
  10. EXTRANEAL [Suspect]
     Route: 033
     Dates: end: 20120101
  11. EXTRANEAL [Suspect]
     Route: 033
     Dates: end: 20120101
  12. DIANEAL [Suspect]
     Indication: PERITONEAL DIALYSIS
     Route: 033
     Dates: end: 20120113
  13. DIANEAL [Suspect]
     Route: 033
     Dates: end: 20120113
  14. DIANEAL [Suspect]
     Route: 033
     Dates: start: 20120114, end: 20120121
  15. DIANEAL [Suspect]
     Route: 033
     Dates: start: 20120114, end: 20120121

REACTIONS (8)
  - FATIGUE [None]
  - DIABETIC COMA [None]
  - HYPOPHAGIA [None]
  - HEADACHE [None]
  - HYPERGLYCAEMIA [None]
  - ESCHAR [None]
  - ASTHENIA [None]
  - HAEMORRHAGE [None]
